FAERS Safety Report 8732129 (Version 2)
Quarter: 2012Q4

REPORT INFORMATION
  Report Type: Spontaneous
  Country: FR (occurrence: None)
  Receive Date: 20120801
  Receipt Date: 20120928
  Transmission Date: 20130627
  Serious: Yes (Hospitalization)
  Sender: FDA-Public Use
  Company Number: FR-008986

PATIENT
  Age: 64 Year
  Sex: Male

DRUGS (2)
  1. DEGARELIX [Suspect]
     Indication: PROSTATE CANCER
     Route: 058
     Dates: start: 201202
  2. DEGARELIX [Suspect]
     Indication: PROSTATE CANCER
     Dosage: (2 DF 1X SUBCUTANEOUS)
     Route: 058
     Dates: start: 20120117, end: 20120117

REACTIONS (2)
  - Prostatic specific antigen increased [None]
  - Penile oedema [None]
